FAERS Safety Report 24761139 (Version 2)
Quarter: 2024Q4

REPORT INFORMATION
  Report Type: Spontaneous
  Country: US (occurrence: US)
  Receive Date: 20241220
  Receipt Date: 20241226
  Transmission Date: 20250115
  Serious: No
  Sender: PFIZER
  Company Number: US-PFIZER INC-202400323747

PATIENT
  Age: 8 Year
  Sex: Female

DRUGS (1)
  1. GENOTROPIN [Suspect]
     Active Substance: SOMATROPIN
     Dosage: 0.9 MG, DAILY (7 DAYS/WEEK)

REACTIONS (6)
  - Drug dose omission by device [Unknown]
  - Needle issue [Unknown]
  - Device mechanical issue [Unknown]
  - Device leakage [Unknown]
  - Device material issue [Unknown]
  - Device issue [Unknown]
